FAERS Safety Report 15516494 (Version 1)
Quarter: 2018Q4

REPORT INFORMATION
  Report Type: Spontaneous
  Country: US (occurrence: US)
  Receive Date: 20181017
  Receipt Date: 20181017
  Transmission Date: 20190205
  Serious: Yes (Hospitalization, Other)
  Sender: FDA-Public Use
  Company Number: US-MYLANLABS-2018M1076547

PATIENT
  Age: 45 Year
  Sex: Female

DRUGS (10)
  1. GEMCITABINE [Suspect]
     Active Substance: GEMCITABINE\GEMCITABINE HYDROCHLORIDE
     Indication: MYCOSIS FUNGOIDES STAGE III
     Dosage: FIRST DOSE
     Route: 065
  2. MICAFUNGIN. [Concomitant]
     Active Substance: MICAFUNGIN SODIUM
     Indication: HERPES SIMPLEX
  3. GEMCITABINE [Suspect]
     Active Substance: GEMCITABINE\GEMCITABINE HYDROCHLORIDE
     Dosage: SECOND DOSE
     Route: 042
  4. MICAFUNGIN. [Concomitant]
     Active Substance: MICAFUNGIN SODIUM
     Indication: OTITIS EXTERNA
     Route: 065
  5. VANCOMYCIN [Concomitant]
     Active Substance: VANCOMYCIN
     Indication: HERPES SIMPLEX
  6. MEROPENEM. [Concomitant]
     Active Substance: MEROPENEM
     Indication: HERPES SIMPLEX
  7. ACYCLOVIR                          /00587301/ [Concomitant]
     Active Substance: ACYCLOVIR
     Indication: OTITIS EXTERNA
     Route: 065
  8. ACYCLOVIR                          /00587301/ [Concomitant]
     Active Substance: ACYCLOVIR
     Indication: HERPES SIMPLEX
  9. VANCOMYCIN [Concomitant]
     Active Substance: VANCOMYCIN
     Indication: OTITIS EXTERNA
     Route: 065
  10. MEROPENEM. [Concomitant]
     Active Substance: MEROPENEM
     Indication: OTITIS EXTERNA
     Route: 065

REACTIONS (3)
  - Anaemia [Unknown]
  - Skin necrosis [Recovering/Resolving]
  - Cytopenia [Unknown]
